FAERS Safety Report 18612233 (Version 1)
Quarter: 2020Q4

REPORT INFORMATION
  Report Type: Spontaneous
  Country: US (occurrence: US)
  Receive Date: 20201214
  Receipt Date: 20201214
  Transmission Date: 20210114
  Serious: Yes (Hospitalization)
  Sender: FDA-Public Use
  Company Number: US-GUERBET-US-20200188

PATIENT
  Age: 77 Year
  Sex: Male

DRUGS (9)
  1. DOXORUBICIN [Suspect]
     Active Substance: DOXORUBICIN
     Indication: TRANSCATHETER ARTERIAL CHEMOEMBOLISATION
     Dosage: CONSISTING OF A 2:1 MIXTURE CONTAINING 20 ML LIPIODOL AND 10 ML AQUEOUS CHEMOTHERAPY SOLUTION COMPRI
     Route: 013
  2. CEFAZOLIN [Concomitant]
     Active Substance: CEFAZOLIN
     Indication: PREMEDICATION
     Route: 042
  3. METRONIDAZOLE. [Concomitant]
     Active Substance: METRONIDAZOLE
     Indication: PREMEDICATION
     Route: 042
  4. MITOMYCIN C [Suspect]
     Active Substance: MITOMYCIN
     Indication: TRANSCATHETER ARTERIAL CHEMOEMBOLISATION
     Dosage: CONSISTING OF A 2:1 MIXTURE CONTAINING 20 ML LIPIODOL AND 10 ML AQUEOUS CHEMOTHERAPY SOLUTION COMPRI
     Route: 013
  5. ONDANSETRON [Concomitant]
     Active Substance: ONDANSETRON
     Indication: PREMEDICATION
     Route: 042
  6. DIPHENHYDRAMINE. [Concomitant]
     Active Substance: DIPHENHYDRAMINE
     Indication: PREMEDICATION
     Route: 042
  7. LIPIODOL [Suspect]
     Active Substance: ETHIODIZED OIL
     Indication: TRANSCATHETER ARTERIAL CHEMOEMBOLISATION
     Dosage: CONSISTING OF A 2:1 MIXTURE CONTAINING 20 ML LIPIODOL AND 10 ML AQUEOUS CHEMOTHERAPY SOLUTION COMPRI
     Route: 013
  8. DEXAMETHASONE. [Concomitant]
     Active Substance: DEXAMETHASONE
     Indication: PREMEDICATION
     Route: 042
  9. EMBOSPHERE [Concomitant]
     Indication: TRANSCATHETER ARTERIAL CHEMOEMBOLISATION
     Dosage: FOUR VIALS OF 100 TO 300 UM MICROSPHERES AND TWO VIALS OF 300 TO 500 UM MICROSPHERES
     Route: 013

REACTIONS (3)
  - Overdose [Recovered/Resolved]
  - Product use in unapproved indication [Recovered/Resolved]
  - Hypersensitivity [Recovered/Resolved]
